FAERS Safety Report 9356026 (Version 1)
Quarter: 2013Q2

REPORT INFORMATION
  Report Type: Spontaneous
  Country: US (occurrence: US)
  Receive Date: 20130619
  Receipt Date: 20130619
  Transmission Date: 20140414
  Serious: Yes (Hospitalization)
  Sender: FDA-Public Use
  Company Number: US-ELI_LILLY_AND_COMPANY-US201306002906

PATIENT
  Age: 59 Year
  Sex: Female

DRUGS (9)
  1. FORTEO [Suspect]
     Indication: OSTEOPOROSIS
     Dosage: UNK, QD
     Dates: start: 20130509, end: 20130511
  2. ZETIA [Concomitant]
  3. ZOCOR [Concomitant]
  4. SINGULAR [Concomitant]
  5. PENICILLIN VK [Concomitant]
  6. NORCO [Concomitant]
  7. TRAMADOL [Concomitant]
  8. PROZAC [Concomitant]
  9. PROTONIX [Concomitant]

REACTIONS (2)
  - Femur fracture [Unknown]
  - Rash [Unknown]
